FAERS Safety Report 9359317 (Version 2)
Quarter: 2013Q3

REPORT INFORMATION
  Report Type: Spontaneous
  Country: IN (occurrence: IN)
  Receive Date: 20130620
  Receipt Date: 20130802
  Transmission Date: 20140515
  Serious: Yes (Death)
  Sender: FDA-Public Use
  Company Number: PHHY2013IN062454

PATIENT
  Age: 60 Year
  Sex: Male

DRUGS (3)
  1. VALPROIC ACID [Suspect]
  2. CLONAZEPAM [Suspect]
  3. MIDAZOLAM [Suspect]

REACTIONS (2)
  - Cardiac arrest [Fatal]
  - Drug ineffective [Unknown]
